FAERS Safety Report 9229409 (Version 1)
Quarter: 2013Q2

REPORT INFORMATION
  Report Type: Spontaneous
  Country: US (occurrence: US)
  Receive Date: 20130412
  Receipt Date: 20130412
  Transmission Date: 20140414
  Serious: Yes (Hospitalization)
  Sender: FDA-Public Use
  Company Number: US-ASTELLAS-2013US001373

PATIENT
  Age: 47 Year
  Sex: Male
  Weight: 149 kg

DRUGS (9)
  1. PROGRAF [Suspect]
     Indication: RENAL TRANSPLANT
     Dosage: 7 MG, UID/QD
     Route: 048
     Dates: start: 20060628
  2. DILTIAZEM [Concomitant]
     Indication: BLOOD PRESSURE
     Dosage: 250 MG, BID
     Route: 048
  3. GABAPENTIN [Concomitant]
     Indication: NERVE INJURY
     Dosage: 300 MG, TID
     Route: 048
  4. FUROSEMIDE [Concomitant]
     Indication: PRODUCT USED FOR UNKNOWN INDICATION
     Dosage: 40 MG, UID/QD
     Route: 048
  5. PREDNISONE [Concomitant]
     Indication: RENAL TRANSPLANT
     Dosage: 20 MG, UID/QD
     Route: 048
  6. GLIPIZIDE [Concomitant]
     Indication: PRODUCT USED FOR UNKNOWN INDICATION
     Dosage: 2.5 MG, UID/QD
     Route: 048
  7. POTASSIUM [Concomitant]
     Indication: PRODUCT USED FOR UNKNOWN INDICATION
     Dosage: UNK
     Route: 065
  8. CARVEDILOL [Concomitant]
     Indication: PRODUCT USED FOR UNKNOWN INDICATION
     Dosage: 20 MG, BID
     Route: 048
  9. COUMADIN                           /00014802/ [Concomitant]
     Indication: PRODUCT USED FOR UNKNOWN INDICATION
     Dosage: 6 MG, UID/QD
     Route: 048

REACTIONS (2)
  - Drug ineffective [Unknown]
  - Kidney transplant rejection [Unknown]
